FAERS Safety Report 5949769-5 (Version None)
Quarter: 2008Q4

REPORT INFORMATION
  Report Type: 
  Country: None (occurrence: None)
  Receive Date: 20081022
  Receipt Date: 20080414
  Transmission Date: 20090506
  Serious: Yes (Other)
  Sender: FDA-Public Use
  Company Number: SPV1-2008-00645

PATIENT
  Age: 8 Year
  Sex: Male
  Weight: 27.2 kg

DRUGS (4)
  1. VYVANSE [Suspect]
     Indication: ATTENTION DEFICIT/HYPERACTIVITY DISORDER
     Dosage: 30 MG, 1X/DAY:QD, ORAL
     Route: 048
     Dates: start: 20080206, end: 20080208
  2. ZYRTEC [Concomitant]
  3. SINGULAIR /01362601/ (MONTELUKAST) [Concomitant]
  4. MELATONIN (MELATONIN) [Concomitant]

REACTIONS (10)
  - AGITATION [None]
  - ANGER [None]
  - CRYING [None]
  - EMOTIONAL DISORDER [None]
  - INSOMNIA [None]
  - LOGORRHOEA [None]
  - MUSCULAR WEAKNESS [None]
  - RESTLESSNESS [None]
  - SUICIDAL IDEATION [None]
  - TIC [None]
